FAERS Safety Report 4477190-8 (Version None)
Quarter: 2004Q4

REPORT INFORMATION
  Report Type: 
  Country: None (occurrence: None)
  Receive Date: 20041018
  Receipt Date: 20041007
  Transmission Date: 20050328
  Serious: Yes (Hospitalization)
  Sender: FDA-Public Use
  Company Number: FR-MERCK-0410FRA00032

PATIENT
  Age: 70 Year
  Sex: Male

DRUGS (4)
  1. PROPAFENONE HYDROCHLORIDE [Concomitant]
     Indication: ARRHYTHMIA
     Route: 048
  2. VIOXX [Suspect]
     Indication: LOCALISED OSTEOARTHRITIS
     Route: 048
     Dates: start: 20000601, end: 20010601
  3. VIOXX [Suspect]
     Route: 048
     Dates: start: 20011201, end: 20020201
  4. VIOXX [Suspect]
     Route: 048
     Dates: start: 20020301, end: 20020501

REACTIONS (2)
  - CEREBROVASCULAR ACCIDENT [None]
  - LOCALISED OSTEOARTHRITIS [None]
